FAERS Safety Report 5641354-8 (Version None)
Quarter: 2008Q1

REPORT INFORMATION
  Report Type: 
  Country: None (occurrence: None)
  Receive Date: 20080227
  Receipt Date: 20070622
  Transmission Date: 20080703
  Serious: No
  Sender: FDA-Public Use
  Company Number: A0659092A

PATIENT

DRUGS (1)
  1. NICORETTE (MINT) [Suspect]
     Indication: DRUG USE FOR UNKNOWN INDICATION

REACTIONS (1)
  - PAIN IN JAW [None]
